FAERS Safety Report 20567207 (Version 1)
Quarter: 2022Q1

REPORT INFORMATION
  Report Type: Spontaneous
  Country: JP (occurrence: JP)
  Receive Date: 20220308
  Receipt Date: 20220308
  Transmission Date: 20220423
  Serious: Yes (Hospitalization)
  Sender: FDA-Public Use
  Company Number: JPN-CUMBERLAND-2022-JP-000001

PATIENT
  Age: 56 Year
  Sex: Female

DRUGS (7)
  1. REDITREX [Suspect]
     Active Substance: METHOTREXATE
     Dosage: PATIENT REDUCED FROM 12 MG/WK TO 8 MG/WK UPON DISCHARGE
     Route: 048
  2. PEMBROLIZUMAB [Suspect]
     Active Substance: PEMBROLIZUMAB
     Route: 065
  3. PREDNISOLONE [Concomitant]
     Active Substance: PREDNISOLONE
     Route: 048
  4. METHYLPREDNISOLONE [Concomitant]
     Active Substance: METHYLPREDNISOLONE
     Dosage: PATIENT RECIEVED 3 ROUNDS
     Route: 042
  5. TACROLIMUS [Concomitant]
     Active Substance: TACROLIMUS
     Route: 065
  6. DOCETAXEL [Concomitant]
     Active Substance: DOCETAXEL
     Dosage: UNKNOWN
  7. CARBOPLATIN [Concomitant]
     Active Substance: CARBOPLATIN
     Dosage: UNKNOWN

REACTIONS (7)
  - Visual impairment [Recovered/Resolved]
  - Headache [Recovered/Resolved]
  - Vomiting [Recovered/Resolved]
  - Altered state of consciousness [Recovered/Resolved]
  - Meningitis [Recovered/Resolved]
  - Encephalitis [Recovered/Resolved]
  - Pyrexia [Recovered/Resolved]
